FAERS Safety Report 7461442-3 (Version None)
Quarter: 2011Q2

REPORT INFORMATION
  Report Type: 
  Country: None (occurrence: None)
  Receive Date: 20110506
  Receipt Date: 20110502
  Transmission Date: 20111010
  Serious: Yes (Other)
  Sender: FDA-Public Use
  Company Number: US-PFIZER INC-2011036273

PATIENT
  Sex: Female

DRUGS (5)
  1. SYNTHROID [Concomitant]
     Indication: HYPOTHYROIDISM
     Dosage: UNK
     Dates: start: 20050101
  2. CHANTIX [Suspect]
     Indication: SMOKING CESSATION THERAPY
     Dosage: 0.5 MG, UNK
     Dates: start: 20090313, end: 20090601
  3. AMBIEN [Concomitant]
     Indication: SLEEP DISORDER THERAPY
     Dosage: UNK
  4. LITHIUM [Concomitant]
     Indication: MOOD SWINGS
     Dosage: UNK
  5. CRESTOR [Concomitant]
     Indication: BLOOD CHOLESTEROL
     Dosage: UNK
     Dates: start: 20080701

REACTIONS (4)
  - DEPRESSION [None]
  - MENTAL DISORDER [None]
  - ANXIETY [None]
  - SUICIDE ATTEMPT [None]
